FAERS Safety Report 7101190-2 (Version None)
Quarter: 2010Q4

REPORT INFORMATION
  Report Type: 
  Country: None (occurrence: None)
  Receive Date: 20101114
  Receipt Date: 20101021
  Transmission Date: 20110411
  Serious: Yes (Death)
  Sender: FDA-Public Use
  Company Number: GB-AMGEN-GBRCT2010001042

PATIENT

DRUGS (9)
  1. ETANERCEPT [Suspect]
     Indication: RHEUMATOID ARTHRITIS
     Dosage: 25 MG, 2 TIMES/WK
     Route: 058
     Dates: start: 20070511, end: 20070518
  2. PREDNISOLONE [Concomitant]
     Dosage: UNKNOWN
  3. ACTONEL [Concomitant]
     Dosage: UNKNOWN
  4. TRAMADOL HCL [Concomitant]
     Dosage: UNKNOWN
  5. PRILOSEC [Concomitant]
     Dosage: UNKNOWN
  6. MOBIC [Concomitant]
     Dosage: UNKNOWN
  7. PAROXETINE HCL [Concomitant]
     Dosage: UNKNOWN
  8. LEFLUNOMIDE [Concomitant]
     Dosage: UNKNOWN
  9. AMITRIPTYLINE HCL [Concomitant]
     Dosage: UNKNOWN

REACTIONS (3)
  - CARDIAC FAILURE CONGESTIVE [None]
  - PNEUMONIA [None]
  - RENAL FAILURE [None]
